FAERS Safety Report 5428242-7 (Version None)
Quarter: 2007Q3

REPORT INFORMATION
  Report Type: 
  Country: None (occurrence: None)
  Receive Date: 20070731
  Receipt Date: 20070410
  Transmission Date: 20080115
  Serious: No
  Sender: FDA-Public Use
  Company Number: US200704002431

PATIENT
  Age: 66 Year
  Sex: Female
  Weight: 67.1 kg

DRUGS (7)
  1. BYETTA [Suspect]
     Indication: TYPE 2 DIABETES MELLITUS
     Dosage: 10 UG, 2/D, SQ   5 UG, 2/D, SQ   5 UG, 2/D, SQ   5 UG, DAILY (1/D), SQ
     Route: 058
     Dates: start: 20060201, end: 20060101
  2. BYETTA [Suspect]
     Indication: TYPE 2 DIABETES MELLITUS
     Dosage: 10 UG, 2/D, SQ   5 UG, 2/D, SQ   5 UG, 2/D, SQ   5 UG, DAILY (1/D), SQ
     Route: 058
     Dates: start: 20060101, end: 20060201
  3. BYETTA [Suspect]
     Indication: TYPE 2 DIABETES MELLITUS
     Dosage: 10 UG, 2/D, SQ   5 UG, 2/D, SQ   5 UG, 2/D, SQ   5 UG, DAILY (1/D), SQ
     Route: 058
     Dates: start: 20060101, end: 20070401
  4. BYETTA [Suspect]
     Indication: TYPE 2 DIABETES MELLITUS
     Dosage: 10 UG, 2/D, SQ   5 UG, 2/D, SQ   5 UG, 2/D, SQ   5 UG, DAILY (1/D), SQ
     Route: 058
     Dates: start: 20070401
  5. BYETTA [Suspect]
  6. METFRORMIN [Concomitant]
  7. EXENATIDE PEN [Concomitant]

REACTIONS (2)
  - NAUSEA [None]
  - WEIGHT DECREASED [None]
